FAERS Safety Report 9466369 (Version 1)
Quarter: 2013Q3

REPORT INFORMATION
  Report Type: Spontaneous
  Country: US (occurrence: None)
  Receive Date: 20130816
  Receipt Date: 20130816
  Transmission Date: 20140515
  Serious: Yes (Other)
  Sender: FDA-Public Use
  Company Number: None

PATIENT
  Age: 50 Year
  Sex: Female
  Weight: 79.38 kg

DRUGS (8)
  1. ZENPEP [Suspect]
     Indication: PANCREATITIS
     Dosage: STRENGTH: 20 UNITS(?)  2 WITH MEALS, 1 WITH SNACKS  6 TIMES A DAY   (3 MEALS, 3 SNACKS) BY MOUTH
     Route: 048
     Dates: start: 20130806
  2. ZENPEP [Suspect]
     Indication: COELIAC DISEASE
     Dosage: STRENGTH: 20 UNITS(?)  2 WITH MEALS, 1 WITH SNACKS  6 TIMES A DAY   (3 MEALS, 3 SNACKS) BY MOUTH
     Route: 048
     Dates: start: 20130806
  3. SYNTHROID [Concomitant]
  4. FLUOXETINE [Concomitant]
  5. FOCALIN [Concomitant]
  6. SENNA [Concomitant]
  7. ASPIRIN [Concomitant]
  8. PROBIOTIC [Concomitant]

REACTIONS (1)
  - Product quality issue [None]
